FAERS Safety Report 10090146 (Version 1)
Quarter: 2014Q2

REPORT INFORMATION
  Report Type: Spontaneous
  Country: FR (occurrence: FR)
  Receive Date: 20140421
  Receipt Date: 20140421
  Transmission Date: 20141212
  Serious: Yes (Other)
  Sender: FDA-Public Use
  Company Number: FR-JNJFOC-20140411770

PATIENT
  Age: 68 Year
  Sex: Male

DRUGS (10)
  1. REMICADE [Suspect]
     Indication: PSORIATIC ARTHROPATHY
     Route: 042
     Dates: start: 2001, end: 20140107
  2. METHOTREXATE [Concomitant]
     Route: 065
  3. SPECIAFOLDINE [Concomitant]
     Route: 065
  4. TAHOR [Concomitant]
     Route: 065
  5. XYZALL [Concomitant]
     Route: 065
  6. RAMIPRIL [Concomitant]
     Route: 065
  7. KARDEGIC [Concomitant]
     Route: 065
  8. SOPROL [Concomitant]
     Route: 065
  9. MOPRAL [Concomitant]
     Route: 065
  10. AMLOR [Concomitant]
     Route: 065

REACTIONS (1)
  - Prostate cancer [Not Recovered/Not Resolved]
